FAERS Safety Report 8114022-0 (Version None)
Quarter: 2012Q1

REPORT INFORMATION
  Report Type: 
  Country: None (occurrence: None)
  Receive Date: 20120203
  Receipt Date: 20120203
  Transmission Date: 20120608
  Serious: Yes (Other)
  Sender: FDA-Public Use
  Company Number: IE-PFIZER INC-2011169337

PATIENT
  Sex: Male

DRUGS (8)
  1. VENTOLIN [Concomitant]
     Dosage: UNK
  2. COVERSYL PLUS [Concomitant]
     Dosage: 1.25 MG, 1X/DAY
  3. TRAMADOL [Concomitant]
     Dosage: 50 MG, 3X/DAY
  4. FLURAZEPAM [Concomitant]
     Dosage: 30 MG, 1X/DAY
  5. LYRICA [Suspect]
     Indication: AFFECTIVE DISORDER
     Dosage: 150 MG, 3X/DAY
     Dates: start: 19840101
  6. LYRICA [Suspect]
     Indication: NEURALGIA
     Dosage: 650MG DAILY
  7. DIAZEPAM [Concomitant]
     Dosage: 10 MG, 3X/DAY
  8. MIRTAZAPINE [Concomitant]
     Dosage: 45 MG, 1X/DAY

REACTIONS (8)
  - INCORRECT DOSE ADMINISTERED [None]
  - ANXIETY [None]
  - AGITATION [None]
  - WITHDRAWAL SYNDROME [None]
  - DRUG ABUSE [None]
  - DEPRESSED MOOD [None]
  - EUPHORIC MOOD [None]
  - MOOD SWINGS [None]
